FAERS Safety Report 10758052 (Version 1)
Quarter: 2015Q1

REPORT INFORMATION
  Report Type: Spontaneous
  Country: US (occurrence: None)
  Receive Date: 20150202
  Receipt Date: 20150202
  Transmission Date: 20150721
  Serious: No
  Sender: FDA-Public Use
  Company Number: None

PATIENT
  Age: 63 Year
  Sex: Female
  Weight: 61.24 kg

DRUGS (4)
  1. TEMAZEPAM. [Concomitant]
     Active Substance: TEMAZEPAM
  2. GABAPENTIN 400 MG [Suspect]
     Active Substance: GABAPENTIN
     Indication: FIBROMYALGIA
     Dosage: BY MOUTH
     Dates: start: 201212
  3. QYCOAL/APAP [Concomitant]
  4. CLONAZEPAM (GABAPENTIN) [Concomitant]

REACTIONS (2)
  - Pain in extremity [None]
  - Muscle disorder [None]

NARRATIVE: CASE EVENT DATE: 20141212
